FAERS Safety Report 7389591-9 (Version None)
Quarter: 2011Q2

REPORT INFORMATION
  Report Type: 
  Country: None (occurrence: None)
  Receive Date: 20110401
  Receipt Date: 20110330
  Transmission Date: 20111010
  Serious: Yes (Life-Threatening, Other)
  Sender: FDA-Public Use
  Company Number: US-PFIZER INC-2006076019

PATIENT
  Age: 89 Year
  Sex: Female
  Weight: 68.2 kg

DRUGS (24)
  1. PRO-BANTHINE [Suspect]
     Route: 065
  2. KEFLEX [Suspect]
     Dosage: UNK
     Route: 065
     Dates: start: 20050101, end: 20050101
  3. SLO-MAG [Suspect]
     Route: 065
  4. DARVOCET-N 50 [Suspect]
     Route: 065
  5. EFFEXOR XR [Suspect]
     Dosage: 225 MG, 1X/DAY
     Route: 048
     Dates: end: 20050301
  6. ANCEF [Suspect]
     Dosage: 6 WEEKS
     Dates: start: 20050101, end: 20050101
  7. COREG [Suspect]
     Route: 065
  8. BUCINDOLOL HYDROCHLORIDE [Suspect]
  9. REMERON [Suspect]
     Indication: DEPRESSION
     Route: 048
     Dates: end: 20050301
  10. DOCUSATE SODIUM [Suspect]
     Route: 065
  11. ASPIRIN [Suspect]
     Route: 065
  12. TRAZODONE HCL [Suspect]
     Route: 065
  13. LASIX [Suspect]
     Route: 065
  14. ALDACTONE [Suspect]
  15. ACETAMINOPHEN [Suspect]
     Route: 065
  16. DUONEB [Suspect]
     Route: 065
  17. NORVASC [Suspect]
  18. BEXTRA [Suspect]
  19. LOVENOX [Suspect]
     Route: 065
  20. COZAAR [Suspect]
     Route: 065
  21. DELTASONE [Suspect]
     Dates: end: 20050325
  22. ADVAIR DISKUS 100/50 [Suspect]
     Route: 065
  23. ULTRAM [Suspect]
     Route: 065
  24. PEPCID [Suspect]
     Route: 065

REACTIONS (1)
  - HYPONATRAEMIA [None]
